FAERS Safety Report 4694929-7 (Version None)
Quarter: 2005Q2

REPORT INFORMATION
  Report Type: 
  Country: None (occurrence: None)
  Receive Date: 20050620
  Receipt Date: 20050607
  Transmission Date: 20051028
  Serious: Yes (Other)
  Sender: FDA-Public Use
  Company Number: GXKR2005US01211

PATIENT
  Age: 62 Year
  Sex: Female

DRUGS (4)
  1. ENALAPRIL MALEATE [Suspect]
     Indication: HYPERTENSION
  2. INDAPAMIDE (NGX) (INDAPAMIDE) [Suspect]
  3. DILTIAZEM [Suspect]
     Indication: HYPERTENSION
     Dosage: 240 MG, QD
  4. 5 OTHER PRODUCTS [Suspect]

REACTIONS (4)
  - ARRHYTHMIA [None]
  - BLOOD PRESSURE SYSTOLIC INCREASED [None]
  - DRUG INTERACTION INHIBITION [None]
  - SINUS BRADYCARDIA [None]
